FAERS Safety Report 8036073-7 (Version None)
Quarter: 2012Q1

REPORT INFORMATION
  Report Type: 
  Country: None (occurrence: None)
  Receive Date: 20120106
  Receipt Date: 20111221
  Transmission Date: 20120608
  Serious: Yes (Death)
  Sender: FDA-Public Use
  Company Number: 1147692

PATIENT
  Age: 67 Year
  Sex: Male

DRUGS (2)
  1. (BEVACIZUMAB) [Concomitant]
  2. METHOTREXATE [Suspect]
     Indication: GLIOBLASTOMA MULTIFORME
     Dosage: 20 G, INTRAVENOUS DRIP
     Route: 041

REACTIONS (11)
  - TOXICITY TO VARIOUS AGENTS [None]
  - MENTAL STATUS CHANGES [None]
  - PANCYTOPENIA [None]
  - HAEMODIALYSIS [None]
  - ANURIA [None]
  - RENAL FAILURE [None]
  - ATRIAL FIBRILLATION [None]
  - SEPSIS [None]
  - AGITATION [None]
  - CONFUSIONAL STATE [None]
  - MULTI-ORGAN FAILURE [None]
